FAERS Safety Report 8589697-2 (Version None)
Quarter: 2012Q3

REPORT INFORMATION
  Report Type: 
  Country: None (occurrence: None)
  Receive Date: 20120813
  Receipt Date: 20120808
  Transmission Date: 20120928
  Serious: Yes (Death, Life-Threatening, Hospitalization, Other)
  Sender: FDA-Public Use
  Company Number: TW-ABBOTT-12P-153-0967132-00

PATIENT
  Age: 40 Year
  Sex: Female

DRUGS (2)
  1. CYCLOSPORINE [Suspect]
  2. CYCLOSPORINE [Suspect]
     Indication: IMMUNOSUPPRESSION

REACTIONS (1)
  - NECROTISING FASCIITIS [None]
